FAERS Safety Report 21001147 (Version 1)
Quarter: 2022Q2

REPORT INFORMATION
  Report Type: Spontaneous
  Country: US (occurrence: US)
  Receive Date: 20220624
  Receipt Date: 20220624
  Transmission Date: 20220720
  Serious: No
  Sender: FDA-Public Use
  Company Number: US-BioHaven Pharmaceuticals-2022BHV000777

PATIENT
  Age: 50 Year
  Sex: Female

DRUGS (1)
  1. NURTEC ODT [Suspect]
     Active Substance: RIMEGEPANT SULFATE
     Indication: Migraine prophylaxis
     Dosage: PATIENT STATED THAT SHE HAS STOPPED AND STARTED NURTEC A COUPLE OF TIMES
     Route: 065
     Dates: start: 20210709, end: 202203

REACTIONS (2)
  - Drug ineffective [Unknown]
  - Product use complaint [Unknown]
